FAERS Safety Report 18857373 (Version 2)
Quarter: 2021Q2

REPORT INFORMATION
  Report Type: Other
  Country: US (occurrence: US)
  Receive Date: 20210208
  Receipt Date: 20210418
  Transmission Date: 20210717
  Serious: No
  Sender: FDA-Public Use
  Company Number: US-AMAG PHARMACEUTICALS, INC.-AMAG202100090

PATIENT
  Age: 32 Year
  Sex: Female

DRUGS (2)
  1. MAKENA [Suspect]
     Active Substance: HYDROXYPROGESTERONE CAPROATE
     Indication: PREMATURE DELIVERY
     Route: 058
     Dates: start: 20201029, end: 20210205
  2. PRENATAL VITAMIN [Concomitant]
     Active Substance: VITAMINS
     Dosage: 1 TABLET
     Dates: start: 20200811

REACTIONS (6)
  - Arthralgia [Recovered/Resolved]
  - Incorrect route of product administration [Unknown]
  - Injection site mass [Recovered/Resolved]
  - Inappropriate schedule of product administration [Unknown]
  - Injection site pain [Recovered/Resolved]
  - Product dose omission issue [Unknown]

NARRATIVE: CASE EVENT DATE: 20201202
